FAERS Safety Report 25670121 (Version 1)
Quarter: 2025Q3

REPORT INFORMATION
  Report Type: Spontaneous
  Country: CN (occurrence: CN)
  Receive Date: 20250812
  Receipt Date: 20250812
  Transmission Date: 20251021
  Serious: Yes (Life-Threatening, Hospitalization, Other)
  Sender: ASCENT PHARMACEUTICALS INC
  Company Number: CN-ASCENT-2025ASLIT00174

PATIENT
  Age: 25 Year
  Sex: Male

DRUGS (1)
  1. POTASSIUM CHLORIDE [Suspect]
     Active Substance: POTASSIUM CHLORIDE
     Indication: Product used for unknown indication
     Route: 048
     Dates: start: 20220221

REACTIONS (5)
  - Loss of consciousness [Recovered/Resolved]
  - Arrhythmia [Recovered/Resolved]
  - Hyperkalaemia [Recovered/Resolved]
  - Suicide attempt [Unknown]
  - Intentional overdose [Unknown]
